FAERS Safety Report 9261468 (Version 1)
Quarter: 2013Q2

REPORT INFORMATION
  Report Type: Spontaneous
  Country: US (occurrence: US)
  Receive Date: 20130429
  Receipt Date: 20130429
  Transmission Date: 20140414
  Serious: Yes (Hospitalization)
  Sender: FDA-Public Use
  Company Number: US201110004932

PATIENT
  Sex: Male
  Weight: 119.27 kg

DRUGS (18)
  1. BYETTA PEN DISPOSABLE [Suspect]
     Dosage: 10MCG
     Dates: start: 2007, end: 200806
  2. DIOVAN [Concomitant]
  3. HYDROCHLOROTHIAZIDE [Concomitant]
     Dosage: TAB
  4. GLYBURIDE [Concomitant]
     Dosage: TAB
  5. GLUCOVANCE TABS [Concomitant]
     Dosage: 1DF:5/500 UNIT NOS
  6. MICARDIS HCT [Concomitant]
     Dosage: 1DF:80/12.5MG
  7. CIALIS [Concomitant]
     Dosage: 1/2 TAB
  8. ASPIRIN [Concomitant]
  9. CRESTOR [Concomitant]
  10. HYDROCODONE [Concomitant]
  11. OMEGA-3 [Concomitant]
  12. SIMVASTATIN [Concomitant]
  13. NORVASC [Concomitant]
  14. PRAVASTATIN SODIUM [Concomitant]
  15. LANTUS [Concomitant]
     Route: 058
  16. METFORMIN [Concomitant]
  17. BENICAR HCT [Concomitant]
     Dosage: 1DF:40/25 MG DAILY
  18. LISINOPRIL + HCTZ [Concomitant]
     Dosage: 1DF:20/25MG

REACTIONS (1)
  - Pancreatitis acute [Unknown]
